FAERS Safety Report 6276243-1 (Version None)
Quarter: 2009Q3

REPORT INFORMATION
  Report Type: 
  Country: None (occurrence: None)
  Receive Date: 20090722
  Receipt Date: 20090713
  Transmission Date: 20100115
  Serious: Yes (Other)
  Sender: FDA-Public Use
  Company Number: GB-JNJFOC-20090503736

PATIENT
  Sex: Female
  Weight: 72 kg

DRUGS (12)
  1. REMICADE [Suspect]
     Indication: RHEUMATOID ARTHRITIS
     Route: 042
  2. METHOTREXATE [Concomitant]
  3. PREDNISOLONE [Concomitant]
  4. ASPIRIN [Concomitant]
  5. ATENOLOL [Concomitant]
  6. FOLIC ACID [Concomitant]
  7. GTN SPRAY [Concomitant]
  8. OMEPRAZOLE [Concomitant]
  9. PERSANTINE [Concomitant]
  10. RANITIDINE [Concomitant]
  11. ZOLPIDEM [Concomitant]
  12. SULFASALAZINE [Concomitant]

REACTIONS (1)
  - BREAST CANCER IN SITU [None]
